FAERS Safety Report 13155805 (Version 1)
Quarter: 2017Q1

REPORT INFORMATION
  Report Type: Spontaneous
  Country: US (occurrence: US)
  Receive Date: 20170126
  Receipt Date: 20170126
  Transmission Date: 20170428
  Serious: Yes (Other)
  Sender: FDA-Public Use
  Company Number: US-ROCHE-687647

PATIENT
  Age: 58 Year
  Sex: Male
  Weight: 90.9 kg

DRUGS (5)
  1. TOPAMAX [Concomitant]
     Active Substance: TOPIRAMATE
     Route: 065
  2. DEPAKOTE [Concomitant]
     Active Substance: DIVALPROEX SODIUM
     Route: 065
  3. VALIUM [Concomitant]
     Active Substance: DIAZEPAM
     Indication: SEIZURE
     Route: 048
  4. LAMICTAL [Concomitant]
     Active Substance: LAMOTRIGINE
     Route: 065
  5. DIAZEPAM. [Suspect]
     Active Substance: DIAZEPAM
     Indication: SEIZURE
     Route: 065

REACTIONS (1)
  - Seizure [Recovered/Resolved]
